FAERS Safety Report 6392192-2 (Version None)
Quarter: 2009Q4

REPORT INFORMATION
  Report Type: 
  Country: None (occurrence: None)
  Receive Date: 20091007
  Receipt Date: 20080331
  Transmission Date: 20100525
  Serious: Yes (Other)
  Sender: FDA-Public Use
  Company Number: US-PFIZER INC-2008028798

PATIENT
  Sex: Female

DRUGS (1)
  1. XANAX [Suspect]
     Dates: start: 20070101

REACTIONS (2)
  - DYSKINESIA [None]
  - HEAD BANGING [None]
